FAERS Safety Report 11830185 (Version 1)
Quarter: 2015Q4

REPORT INFORMATION
  Report Type: Report from Study
  Country: US (occurrence: US)
  Receive Date: 20151214
  Receipt Date: 20151214
  Transmission Date: 20160305
  Serious: Yes (Other)
  Sender: FDA-Public Use
  Company Number: US-AMGEN-USASL2015132535

PATIENT
  Age: 68 Year
  Sex: Female

DRUGS (1)
  1. ENBREL [Suspect]
     Active Substance: ETANERCEPT
     Indication: RHEUMATOID ARTHRITIS
     Dosage: 50 MG, QWK
     Route: 065
     Dates: start: 20050106

REACTIONS (11)
  - Osteoporosis [Unknown]
  - Arthritis [Unknown]
  - Arthropathy [Unknown]
  - Systemic lupus erythematosus [Unknown]
  - Memory impairment [Unknown]
  - Dizziness [Unknown]
  - Spinal fracture [Unknown]
  - Osteomyelitis [Unknown]
  - Back injury [Unknown]
  - Musculoskeletal discomfort [Unknown]
  - Metatarsal excision [Unknown]

NARRATIVE: CASE EVENT DATE: 201410
